FAERS Safety Report 13371111 (Version 1)
Quarter: 2017Q1

REPORT INFORMATION
  Report Type: Spontaneous
  Country: CA (occurrence: CA)
  Receive Date: 20170324
  Receipt Date: 20170324
  Transmission Date: 20170429
  Serious: Yes (Other)
  Sender: FDA-Public Use
  Company Number: CA-BEH-2017079107

PATIENT
  Age: 78 Year
  Sex: Female
  Weight: 76 kg

DRUGS (10)
  1. PREDNISONE. [Concomitant]
     Active Substance: PREDNISONE
     Route: 065
  2. FOLIC ACID. [Concomitant]
     Active Substance: FOLIC ACID
     Route: 065
  3. VITAMINS                           /90003601/ [Concomitant]
     Active Substance: VITAMINS
     Route: 065
  4. PRIVIGEN [Suspect]
     Active Substance: HUMAN IMMUNOGLOBULIN G
     Indication: DERMATOMYOSITIS
     Dosage: 60 G, TWICE WEEKLY/MONTHLY
     Route: 042
     Dates: start: 20170223, end: 20170323
  5. IMURAN [Concomitant]
     Active Substance: AZATHIOPRINE
     Route: 065
  6. THYROXINE [Concomitant]
     Active Substance: LEVOTHYROXINE
     Route: 065
  7. METHOTREXATE. [Concomitant]
     Active Substance: METHOTREXATE
     Route: 065
  8. METFORMIN [Concomitant]
     Active Substance: METFORMIN HYDROCHLORIDE
     Route: 065
  9. ASA [Concomitant]
     Active Substance: ASPIRIN
     Route: 065
  10. VITAMIN B12 [Concomitant]
     Active Substance: CYANOCOBALAMIN
     Route: 065

REACTIONS (6)
  - Palpitations [Recovered/Resolved]
  - Hot flush [Recovered/Resolved]
  - Atrial fibrillation [Recovered/Resolved]
  - Heart rate irregular [Unknown]
  - Blood pressure increased [Recovered/Resolved]
  - Headache [Recovered/Resolved]

NARRATIVE: CASE EVENT DATE: 20170223
